FAERS Safety Report 10029652 (Version 1)
Quarter: 2014Q1

REPORT INFORMATION
  Report Type: Spontaneous
  Country: US (occurrence: None)
  Receive Date: 20140321
  Receipt Date: 20140321
  Transmission Date: 20141002
  Serious: Yes (Disabling)
  Sender: FDA-Public Use
  Company Number: None

PATIENT
  Age: 69 Year
  Sex: Female

DRUGS (2)
  1. LOPRESSOR 100 MG [Suspect]
     Indication: HYPERTENSION
     Dosage: 1 PILL TWICE DAILY TAKEN BY MOUTH
     Route: 048
  2. LOPRESSOR 100 MG [Suspect]
     Indication: PALPITATIONS
     Dosage: 1 PILL TWICE DAILY TAKEN BY MOUTH
     Route: 048

REACTIONS (7)
  - Blister [None]
  - Rash erythematous [None]
  - Tenderness [None]
  - Dyspnoea [None]
  - Chest pain [None]
  - Palpitations [None]
  - Headache [None]
